FAERS Safety Report 19628547 (Version 1)
Quarter: 2021Q3

REPORT INFORMATION
  Report Type: Spontaneous
  Country: JP (occurrence: JP)
  Receive Date: 20210728
  Receipt Date: 20210728
  Transmission Date: 20211014
  Serious: Yes (Other)
  Sender: FDA-Public Use
  Company Number: JP-ELI_LILLY_AND_COMPANY-JP202107008050

PATIENT

DRUGS (1)
  1. OLUMIANT [Suspect]
     Active Substance: BARICITINIB
     Indication: RHEUMATIC DISORDER
     Dosage: 4 MG, DAILY
     Route: 048
     Dates: start: 2021

REACTIONS (3)
  - Herpes zoster [Unknown]
  - Skin necrosis [Unknown]
  - Herpes simplex [Unknown]

NARRATIVE: CASE EVENT DATE: 2021
